FAERS Safety Report 17264225 (Version 1)
Quarter: 2020Q1

REPORT INFORMATION
  Report Type: Spontaneous
  Country: US (occurrence: US)
  Receive Date: 20200113
  Receipt Date: 20200113
  Transmission Date: 20200409
  Serious: No
  Sender: FDA-Public Use
  Company Number: US-BAUSCH-BL-2020-000776

PATIENT
  Sex: Female

DRUGS (2)
  1. LUMIFY [Suspect]
     Active Substance: BRIMONIDINE TARTRATE
     Indication: OCULAR HYPERAEMIA
     Dosage: STARTED ABOUT ONE YEAR AGO
     Route: 047
  2. LUMIFY [Suspect]
     Active Substance: BRIMONIDINE TARTRATE
     Dosage: NEW BOTTLE
     Route: 047
     Dates: start: 20200105

REACTIONS (2)
  - Product dropper issue [Unknown]
  - Superficial injury of eye [Recovered/Resolved]

NARRATIVE: CASE EVENT DATE: 20190105
